FAERS Safety Report 24157487 (Version 1)
Quarter: 2024Q3

REPORT INFORMATION
  Report Type: Spontaneous
  Country: FR (occurrence: FR)
  Receive Date: 20240731
  Receipt Date: 20240731
  Transmission Date: 20241017
  Serious: Yes (Hospitalization)
  Sender: FRESENIUS KABI
  Company Number: None

PATIENT
  Age: 80 Year
  Sex: Male

DRUGS (6)
  1. LINEZOLID [Suspect]
     Active Substance: LINEZOLID
     Indication: Post procedural infection
     Dosage: 2 TIMES PER DAY?THERAPY START DATE: 08-MAY-2024
     Route: 042
     Dates: end: 20240528
  2. CIPROFLOXACIN [Suspect]
     Active Substance: CIPROFLOXACIN
     Indication: Post procedural infection
     Dosage: 2 TIMES PER DAY
     Route: 042
     Dates: start: 20240420, end: 20240507
  3. RIFAMPIN [Suspect]
     Active Substance: RIFAMPIN
     Indication: Post procedural infection
     Dosage: 600 MG 2 TIMES A DAY?1 PHARMACEUTICAL FORM
     Route: 042
     Dates: start: 20240415, end: 20240507
  4. LANSOPRAZOLE [Suspect]
     Active Substance: LANSOPRAZOLE
     Indication: Oesophageal ulcer
     Dosage: 15 MG PER DAY?1 PHARMACEUTICAL FORM
     Route: 048
     Dates: start: 20240409, end: 20240507
  5. DAPTOMYCIN [Suspect]
     Active Substance: DAPTOMYCIN
     Indication: Post procedural infection
     Dosage: 700 MG/DAY?1 PHARMACEUTICAL FORM
     Route: 042
     Dates: start: 20240409, end: 20240507
  6. CEFEPIME [Suspect]
     Active Substance: CEFEPIME HYDROCHLORIDE
     Indication: Post procedural infection
     Dosage: 3 G 2 TIMES PER DAY?1 PHARMACEUTICAL FORM
     Route: 042
     Dates: start: 20240412, end: 20240528

REACTIONS (2)
  - Renal tubular necrosis [Not Recovered/Not Resolved]
  - Condition aggravated [Not Recovered/Not Resolved]

NARRATIVE: CASE EVENT DATE: 20240504
